FAERS Safety Report 25832918 (Version 1)
Quarter: 2025Q3

REPORT INFORMATION
  Report Type: Spontaneous
  Country: US (occurrence: US)
  Receive Date: 20250922
  Receipt Date: 20250922
  Transmission Date: 20251020
  Serious: No
  Sender: BRAINTREE
  Company Number: US-BRAINTREE LABORATORIES, INC.-2024BTE00776

PATIENT
  Age: 68 Year
  Sex: Male
  Weight: 33.107 kg

DRUGS (2)
  1. SODIUM SULFATE, POTASSIUM SULFATE, MAGNESIUM SULFATE [Suspect]
     Active Substance: MAGNESIUM SULFATE\POTASSIUM SULFATE\SODIUM SULFATE
     Indication: Faecaloma
     Route: 048
     Dates: start: 20241115, end: 202411
  2. SODIUM SULFATE, POTASSIUM SULFATE, MAGNESIUM SULFATE [Suspect]
     Active Substance: MAGNESIUM SULFATE\POTASSIUM SULFATE\SODIUM SULFATE
     Indication: Gastrointestinal pain

REACTIONS (3)
  - Asthenia [Unknown]
  - Abdominal pain lower [Unknown]
  - Off label use [Unknown]

NARRATIVE: CASE EVENT DATE: 20241115
